FAERS Safety Report 7676486-6 (Version None)
Quarter: 2011Q3

REPORT INFORMATION
  Report Type: 
  Country: None (occurrence: None)
  Receive Date: 20110809
  Receipt Date: 20110809
  Transmission Date: 20111222
  Serious: Yes (Hospitalization)
  Sender: FDA-Public Use
  Company Number: None

PATIENT
  Sex: Male
  Weight: 88.9 kg

DRUGS (2)
  1. TAXOL [Suspect]
     Dosage: 107 MG
     Dates: end: 20110613
  2. CARBOPLATIN [Suspect]
     Dosage: 251 MG
     Dates: end: 20110613

REACTIONS (2)
  - PNEUMONITIS [None]
  - PYREXIA [None]
